FAERS Safety Report 7421070-2 (Version None)
Quarter: 2011Q2

REPORT INFORMATION
  Report Type: 
  Country: None (occurrence: None)
  Receive Date: 20110418
  Receipt Date: 20110407
  Transmission Date: 20111010
  Serious: Yes (Other)
  Sender: FDA-Public Use
  Company Number: JP-ASTRAZENECA-2011SE19827

PATIENT
  Age: 55 Year
  Sex: Female

DRUGS (3)
  1. LIVALO [Concomitant]
     Route: 048
     Dates: start: 20090301
  2. SYMBICORT [Suspect]
     Dosage: DOSE UNKNOWN
     Route: 055
     Dates: start: 20110330, end: 20110331
  3. PLACODE [Concomitant]
     Dosage: DOSE UNKNOWN
     Route: 048
     Dates: start: 20110225

REACTIONS (1)
  - ANAPHYLACTIC SHOCK [None]
